FAERS Safety Report 8489939-8 (Version None)
Quarter: 2012Q3

REPORT INFORMATION
  Report Type: 
  Country: None (occurrence: None)
  Receive Date: 20120705
  Receipt Date: 20120628
  Transmission Date: 20120928
  Serious: Yes (Other)
  Sender: FDA-Public Use
  Company Number: US-BAYER-2012-065450

PATIENT
  Age: 49 Year
  Sex: Female
  Weight: 103 kg

DRUGS (6)
  1. BENAZEPRIL HYDROCHLORIDE [Concomitant]
  2. CONTRACEPTIVES NOS [Concomitant]
  3. ALEVE (CAPLET) [Suspect]
     Indication: ARTHRALGIA
     Dosage: 660 MG, ONCE
     Route: 048
     Dates: start: 20120628, end: 20120628
  4. BLOOD PRESSURE MEDICATION (NOS) [Concomitant]
  5. TRAMADOL HYDROCHLORIDE [Concomitant]
     Dosage: NOT EVERY DAY
  6. FLUID PILL [Concomitant]

REACTIONS (4)
  - PHARYNGEAL OEDEMA [None]
  - TONGUE DISCOLOURATION [None]
  - OROPHARYNGEAL PAIN [None]
  - FOREIGN BODY [None]
